FAERS Safety Report 15979356 (Version 1)
Quarter: 2019Q1

REPORT INFORMATION
  Report Type: Spontaneous
  Country: US (occurrence: US)
  Receive Date: 20190216
  Receipt Date: 20190216
  Transmission Date: 20190418
  Serious: Yes (Life-Threatening)
  Sender: FDA-Public Use
  Company Number: None

PATIENT
  Age: 8 Year
  Sex: Male
  Weight: 22.5 kg

DRUGS (1)
  1. OSELTAMIVIR PHOSPHATE FOR ORAL SUSPENSION [Suspect]
     Active Substance: OSELTAMIVIR PHOSPHATE
     Indication: INFLUENZA
     Dosage: ?          QUANTITY:7.5 TEASPOON(S);?
     Route: 048
     Dates: start: 20190215, end: 20190215

REACTIONS (3)
  - Aggression [None]
  - Intentional self-injury [None]
  - Psychotic behaviour [None]

NARRATIVE: CASE EVENT DATE: 20190215
